FAERS Safety Report 15949620 (Version 1)
Quarter: 2019Q1

REPORT INFORMATION
  Report Type: Spontaneous
  Country: US (occurrence: US)
  Receive Date: 20190211
  Receipt Date: 20190211
  Transmission Date: 20190417
  Serious: No
  Sender: FDA-Public Use
  Company Number: US-009507513-1902USA001578

PATIENT
  Age: 16 Year
  Sex: Female
  Weight: 72.56 kg

DRUGS (1)
  1. NEXPLANON [Suspect]
     Active Substance: ETONOGESTREL
     Indication: CONTRACEPTION
     Dosage: IMPLANT IN RIGHT ARM, EVERY 3 YEARS
     Route: 059
     Dates: start: 20180806

REACTIONS (1)
  - Implant site pruritus [Not Recovered/Not Resolved]

NARRATIVE: CASE EVENT DATE: 20190204
